FAERS Safety Report 14610462 (Version 2)
Quarter: 2018Q2

REPORT INFORMATION
  Report Type: Spontaneous
  Country: DE (occurrence: DE)
  Receive Date: 20180307
  Receipt Date: 20180404
  Transmission Date: 20180711
  Serious: Yes (Other)
  Sender: FDA-Public Use
  Company Number: PHHY2018DE034231

PATIENT
  Age: 66 Year
  Sex: Male

DRUGS (3)
  1. REVOLADE [Suspect]
     Active Substance: ELTROMBOPAG
     Dosage: 75 , (112.5MG DAILY, (75 MG AT MID DAY AND A DIVIDED TABLET (37.5 MG) AT EVENING))
     Route: 065
     Dates: start: 201802
  2. REVOLADE [Suspect]
     Active Substance: ELTROMBOPAG
     Indication: IMMUNE THROMBOCYTOPENIC PURPURA
     Dosage: 50 MG, UNK
     Route: 065
     Dates: start: 201603
  3. REVOLADE [Suspect]
     Active Substance: ELTROMBOPAG
     Dosage: 75 MG, QD
     Route: 065

REACTIONS (6)
  - Haemorrhagic diathesis [Recovering/Resolving]
  - Gingival bleeding [Recovered/Resolved]
  - Volume blood decreased [Unknown]
  - Drug ineffective [Unknown]
  - Platelet count decreased [Unknown]
  - Incorrect dose administered [Unknown]

NARRATIVE: CASE EVENT DATE: 201802
